FAERS Safety Report 25947952 (Version 1)
Quarter: 2025Q4

REPORT INFORMATION
  Report Type: Spontaneous
  Country: US (occurrence: US)
  Receive Date: 20251022
  Receipt Date: 20251022
  Transmission Date: 20260119
  Serious: Yes (Other)
  Sender: BAYER HEALTHCARE LLC
  Company Number: US-BAYER-2025A139035

PATIENT
  Sex: Female

DRUGS (2)
  1. LOTRIMIN ANTIFUNGAL (MICONAZOLE NITRATE) [Suspect]
     Active Substance: MICONAZOLE NITRATE
  2. TINACTIN [Suspect]
     Active Substance: TOLNAFTATE

REACTIONS (1)
  - Mesothelioma [None]
